FAERS Safety Report 20132575 (Version 1)
Quarter: 2021Q4

REPORT INFORMATION
  Report Type: Report from Study
  Country: US (occurrence: US)
  Receive Date: 20211130
  Receipt Date: 20211130
  Transmission Date: 20220303
  Serious: No
  Sender: FDA-Public Use
  Company Number: US-BIONICAL EMAS-2021ETO000195

PATIENT

DRUGS (3)
  1. ALKINDI SPRINKLE [Suspect]
     Active Substance: HYDROCORTISONE
     Indication: Adrenogenital syndrome
     Dosage: 1 MG, TID
     Route: 048
     Dates: start: 20210827, end: 202111
  2. ALKINDI SPRINKLE [Suspect]
     Active Substance: HYDROCORTISONE
     Dosage: 0.5 MG, TID
     Route: 048
     Dates: start: 20210827, end: 202111
  3. ALKINDI SPRINKLE [Suspect]
     Active Substance: HYDROCORTISONE
     Dosage: 2.5 MG, BID
     Route: 048
     Dates: start: 202111

REACTIONS (5)
  - Incorrect dose administered [Unknown]
  - Ear infection [Unknown]
  - Pyrexia [Unknown]
  - Poor quality sleep [Unknown]
  - Product physical issue [Unknown]
